FAERS Safety Report 8799267 (Version 3)
Quarter: 2012Q4

REPORT INFORMATION
  Report Type: 
  Country: US (occurrence: US)
  Receive Date: 20120920
  Receipt Date: 20121023
  Transmission Date: 20130627
  Serious: Yes (Hospitalization, Other)
  Sender: FDA-Public Use
  Company Number: US-GILEAD-2012-0061474

PATIENT
  Age: 84 Year
  Sex: Female

DRUGS (1)
  1. LETAIRIS [Suspect]
     Indication: PRODUCT USED FOR UNKNOWN INDICATION
     Dosage: 5 mg, UNK
     Route: 048
     Dates: start: 20120829, end: 20120924

REACTIONS (4)
  - Blood pressure decreased [Not Recovered/Not Resolved]
  - Hypophagia [Unknown]
  - Unevaluable event [Unknown]
  - Fluid retention [Unknown]
